FAERS Safety Report 10670441 (Version 1)
Quarter: 2014Q4

REPORT INFORMATION
  Report Type: Spontaneous
  Country: DK (occurrence: DK)
  Receive Date: 20141223
  Receipt Date: 20141223
  Transmission Date: 20150529
  Serious: Yes (Hospitalization)
  Sender: FDA-Public Use
  Company Number: DK-ROCHE-1512117

PATIENT
  Age: 85 Year
  Sex: Female

DRUGS (7)
  1. ERIVEDGE [Suspect]
     Active Substance: VISMODEGIB
     Indication: BASAL CELL CARCINOMA
     Dosage: DOSIS: 1 TABLET DAGLIGT, STYRKE: 150 MG
     Route: 048
     Dates: start: 20140715, end: 20141020
  2. MAGNESIA ^DAK^ [Concomitant]
     Route: 065
  3. EMPERAL [Concomitant]
     Active Substance: METOCLOPRAMIDE HYDROCHLORIDE
     Route: 065
  4. HJERTEMAGNYL [Concomitant]
     Active Substance: ASPIRIN\MAGNESIUM OXIDE
     Route: 065
  5. PARACETAMOL [Concomitant]
     Active Substance: ACETAMINOPHEN
     Route: 065
  6. MIANSERIN HYDROCHLORIDE [Concomitant]
     Active Substance: MIANSERIN HYDROCHLORIDE
     Route: 065
  7. CORODIL [Concomitant]
     Active Substance: DIPYRIDAMOLE
     Route: 065

REACTIONS (10)
  - Decreased appetite [Unknown]
  - Arrhythmia [Unknown]
  - Weight decreased [Unknown]
  - Abdominal pain [Unknown]
  - Fatigue [Unknown]
  - Constipation [Unknown]
  - Ageusia [Unknown]
  - Dizziness [Unknown]
  - Dysgeusia [Unknown]
  - Malaise [Unknown]

NARRATIVE: CASE EVENT DATE: 20140908
